FAERS Safety Report 21570518 (Version 1)
Quarter: 2022Q4

REPORT INFORMATION
  Report Type: Spontaneous
  Country: US (occurrence: US)
  Receive Date: 20221109
  Receipt Date: 20221109
  Transmission Date: 20230112
  Serious: Yes (Death)
  Sender: FDA-Public Use
  Company Number: US-SUN PHARMACEUTICAL INDUSTRIES LTD-2022R1-362817

PATIENT
  Age: 29 Year
  Sex: Female

DRUGS (4)
  1. DEXAMETHASONE [Suspect]
     Active Substance: DEXAMETHASONE
     Indication: Angiosarcoma
     Dosage: UNK, DAILY
     Route: 048
  2. DEXAMETHASONE [Suspect]
     Active Substance: DEXAMETHASONE
     Indication: Pulmonary mass
  3. PACLITAXEL [Suspect]
     Active Substance: PACLITAXEL
     Indication: Angiosarcoma
     Dosage: UNK UNK, WEEKLY
     Route: 065
  4. PACLITAXEL [Suspect]
     Active Substance: PACLITAXEL
     Indication: Pulmonary mass

REACTIONS (1)
  - Disease progression [Fatal]
